FAERS Safety Report 21779164 (Version 1)
Quarter: 2022Q4

REPORT INFORMATION
  Report Type: Spontaneous
  Country: CN (occurrence: CN)
  Receive Date: 20221226
  Receipt Date: 20221226
  Transmission Date: 20230113
  Serious: Yes (Hospitalization, Other)
  Sender: FDA-Public Use
  Company Number: CN-SA-SAC20221223001524

PATIENT
  Age: 59 Year
  Sex: Female

DRUGS (2)
  1. OXALIPLATIN [Suspect]
     Active Substance: OXALIPLATIN
     Indication: Adenocarcinoma of colon
     Dosage: 180 MG, QD
     Route: 041
     Dates: start: 20221213, end: 20221213
  2. BEVACIZUMAB [Suspect]
     Active Substance: BEVACIZUMAB
     Indication: Adenocarcinoma of colon
     Dosage: 300 MG, QD
     Route: 041
     Dates: start: 20221213, end: 20221213

REACTIONS (1)
  - Blood creatine phosphokinase increased [Not Recovered/Not Resolved]

NARRATIVE: CASE EVENT DATE: 20221214
